FAERS Safety Report 14661190 (Version 5)
Quarter: 2021Q1

REPORT INFORMATION
  Report Type: Spontaneous
  Country: JP (occurrence: JP)
  Receive Date: 20180320
  Receipt Date: 20210114
  Transmission Date: 20210419
  Serious: Yes (Hospitalization, Congenital Anomaly, Other)
  Sender: FDA-Public Use
  Company Number: JP-GLAXOSMITHKLINE-JP2018JPN038239

PATIENT
  Sex: Female
  Weight: 1.25 kg

DRUGS (9)
  1. EPIVIR [Suspect]
     Active Substance: LAMIVUDINE
     Indication: CONGENITAL HIV INFECTION
     Dosage: 8 MG/KG, QD
     Route: 048
     Dates: start: 201711
  2. ZIAGEN [Suspect]
     Active Substance: ABACAVIR SULFATE
     Dosage: 16 MG/KG, QD
     Route: 050
     Dates: start: 201711
  3. EPIVIR [Suspect]
     Active Substance: LAMIVUDINE
     Dosage: 8 MG/KG, QD
     Route: 050
     Dates: start: 201711
  4. AZT [Suspect]
     Active Substance: ZIDOVUDINE
     Indication: CONGENITAL HIV INFECTION
     Dosage: UNK, SINGLE
     Route: 064
     Dates: start: 201708
  5. ZIDOVUDINE. [Suspect]
     Active Substance: ZIDOVUDINE
     Indication: CONGENITAL HIV INFECTION
     Dosage: UNK
     Route: 048
     Dates: end: 201711
  6. SULFADIAZINE. [Suspect]
     Active Substance: SULFADIAZINE
     Indication: CONGENITAL TOXOPLASMOSIS
     Route: 048
  7. ZIAGEN [Suspect]
     Active Substance: ABACAVIR SULFATE
     Indication: CONGENITAL HIV INFECTION
     Dosage: 16 MG/KG, QD
     Route: 048
     Dates: start: 201711
  8. ZIDOVUDINE. [Suspect]
     Active Substance: ZIDOVUDINE
     Dosage: UNK
     Route: 050
  9. VIRAMUNE [Concomitant]
     Active Substance: NEVIRAPINE
     Indication: CONGENITAL HIV INFECTION
     Dosage: 6 MG/KG, EVERY12 HOURS
     Dates: start: 201711

REACTIONS (12)
  - Cerebral haemorrhage [Unknown]
  - Cerebral ventricle dilatation [Unknown]
  - Pathogen resistance [Unknown]
  - Premature baby [Unknown]
  - Product use issue [Unknown]
  - Congenital toxoplasmosis [Not Recovered/Not Resolved]
  - Anaemia [Unknown]
  - Neutropenia [Unknown]
  - Low birth weight baby [Unknown]
  - Congenital HIV infection [Not Recovered/Not Resolved]
  - Off label use [Unknown]
  - Foetal exposure during pregnancy [Unknown]

NARRATIVE: CASE EVENT DATE: 201708
